FAERS Safety Report 7275962-8 (Version None)
Quarter: 2011Q1

REPORT INFORMATION
  Report Type: 
  Country: None (occurrence: None)
  Receive Date: 20110204
  Receipt Date: 20110202
  Transmission Date: 20110831
  Serious: Yes (Death)
  Sender: FDA-Public Use
  Company Number: A0911448A

PATIENT
  Age: 57 Year
  Sex: Female

DRUGS (4)
  1. ARIXTRA [Suspect]
     Dosage: 7.5MG PER DAY
     Route: 058
  2. CHEMOTHERAPY [Concomitant]
  3. XELODA [Concomitant]
  4. KADIAN [Concomitant]

REACTIONS (1)
  - DEATH [None]
